FAERS Safety Report 15385158 (Version 1)
Quarter: 2018Q3

REPORT INFORMATION
  Report Type: Report from Study
  Country: DE (occurrence: DE)
  Receive Date: 20180914
  Receipt Date: 20180914
  Transmission Date: 20181010
  Serious: Yes (Hospitalization)
  Sender: FDA-Public Use
  Company Number: DE-ROCHE-2184456

PATIENT
  Age: 60 Year
  Sex: Female
  Weight: 48 kg

DRUGS (4)
  1. OBINUTUZUMAB. [Suspect]
     Active Substance: OBINUTUZUMAB
     Indication: CHRONIC LYMPHOCYTIC LEUKAEMIA
     Dosage: 100 MG ON DAY 1 OF CYCLE 1 AND 900 MG ON DAY 2 OF CYCLE 1; 1000 MG ON DAY 8 AND 15 OF CYCLE 1 AND DA
     Route: 042
     Dates: start: 20180626
  2. VENETOCLAX. [Suspect]
     Active Substance: VENETOCLAX
     Indication: CHRONIC LYMPHOCYTIC LEUKAEMIA
     Dosage: DATE OF MOST RECENT DOSE PRIOR TO SERIOUS ADVERSE EVENT: 20/AUG/2018 (100 MG)
     Route: 048
     Dates: start: 20180717
  3. CLEXANE [Concomitant]
     Active Substance: ENOXAPARIN SODIUM
     Route: 058
     Dates: start: 20180911
  4. IBRUTINIB [Suspect]
     Active Substance: IBRUTINIB
     Indication: CHRONIC LYMPHOCYTIC LEUKAEMIA
     Dosage: DATE OF MOST RECENT DOSE PRIOR TO SERIOUS ADVERSE EVENT: 14/AUG/2018 (420 MG)
     Route: 048
     Dates: start: 20180626

REACTIONS (1)
  - Bronchitis [Not Recovered/Not Resolved]

NARRATIVE: CASE EVENT DATE: 20180911
